FAERS Safety Report 5483678-3 (Version None)
Quarter: 2007Q4

REPORT INFORMATION
  Report Type: 
  Country: None (occurrence: None)
  Receive Date: 20071009
  Receipt Date: 20071009
  Transmission Date: 20080405
  Serious: Yes (Other)
  Sender: FDA-Public Use
  Company Number: None

PATIENT

DRUGS (1)
  1. CHANTIX [Suspect]

REACTIONS (5)
  - ANXIETY [None]
  - DEPRESSION [None]
  - HYPERTENSION [None]
  - PALPITATIONS [None]
  - SUICIDAL IDEATION [None]
